FAERS Safety Report 9090832 (Version 2)
Quarter: 2013Q1

REPORT INFORMATION
  Report Type: Spontaneous
  Country: CN (occurrence: CN)
  Receive Date: 20130201
  Receipt Date: 20130208
  Transmission Date: 20140127
  Serious: Yes (Other)
  Sender: FDA-Public Use
  Company Number: CN-ASTRAZENECA-2013SE04820

PATIENT
  Age: 78 Year
  Sex: Female

DRUGS (3)
  1. CRESTOR [Suspect]
     Indication: CAROTID ARTERIOSCLEROSIS
     Dosage: 10 MG, EVERY OTHER NIGHT
     Route: 048
     Dates: start: 201208, end: 201211
  2. CRESTOR [Suspect]
     Indication: CAROTID ARTERIOSCLEROSIS
     Dosage: 10 MG AND 15 MG, EVERY OTHER NIGHT
     Route: 048
     Dates: start: 201211, end: 201212
  3. LIPTOR [Concomitant]
     Dosage: 20 MG, EVERY OTHER NIGHT
     Dates: end: 201208

REACTIONS (1)
  - Hepatic enzyme abnormal [Recovering/Resolving]
